FAERS Safety Report 5511483-8 (Version None)
Quarter: 2007Q4

REPORT INFORMATION
  Report Type: 
  Country: None (occurrence: None)
  Receive Date: 20071109
  Receipt Date: 20071105
  Transmission Date: 20080405
  Serious: Yes (Hospitalization)
  Sender: FDA-Public Use
  Company Number: A0691429A

PATIENT
  Age: 93 Year
  Sex: Male

DRUGS (2)
  1. COREG [Suspect]
     Route: 048
     Dates: start: 20050101
  2. VASOTEC [Concomitant]

REACTIONS (6)
  - ABASIA [None]
  - COUGH [None]
  - FATIGUE [None]
  - HYPERSOMNIA [None]
  - PULMONARY OEDEMA [None]
  - SLUGGISHNESS [None]
